FAERS Safety Report 25139940 (Version 3)
Quarter: 2025Q4

REPORT INFORMATION
  Report Type: Other
  Country: EU (occurrence: EU)
  Receive Date: 20250331
  Receipt Date: 20251229
  Transmission Date: 20260118
  Serious: Yes (Hospitalization, Disabling, Other)
  Sender: ZYDUS PHARM
  Company Number: None

PATIENT

DRUGS (39)
  1. PREGABALIN [Suspect]
     Active Substance: PREGABALIN
     Indication: Product used for unknown indication
     Dosage: 1 DOSAGE FORM EVERY 12 HRS
     Route: 065
  2. BROMAZEPAM [Suspect]
     Active Substance: BROMAZEPAM
     Indication: Product used for unknown indication
     Dosage: 0.25 DOSAGE FORM EVERY 8 HRS
     Route: 048
  3. BROMAZEPAM [Suspect]
     Active Substance: BROMAZEPAM
     Dosage: 18 MILLIGRAM, QD; 6 MG (6 MG TABS DOUBLE-SCORED 1 TBLT/30) 1/4 TABLET MORNING, NOON AND EVENING, FOR
     Route: 048
  4. CETIRIZINE HYDROCHLORIDE [Suspect]
     Active Substance: CETIRIZINE HYDROCHLORIDE
     Indication: Product used for unknown indication
     Dosage: 1 DF, QD/ONCE IN THE EVENING
  5. ACETAMINOPHEN [Suspect]
     Active Substance: ACETAMINOPHEN
     Indication: Product used for unknown indication
     Dosage: 1 G
     Route: 065
  6. SMECTA [Suspect]
     Active Substance: MONTMORILLONITE
     Indication: Product used for unknown indication
     Dosage: 3 G POWDER FOR ORAL SUSP, IN ORANGE VANILLA SACHET) 3 SACHETS A DAY FOR 10 DAYS
     Route: 048
  7. PROGESTERONE [Suspect]
     Active Substance: PROGESTERONE
     Indication: Product used for unknown indication
     Dosage: 1 DOSE OF GEL PER DAY ON THE BREASTS RP 6 MONTHS
     Route: 065
  8. PROGESTERONE [Suspect]
     Active Substance: PROGESTERONE
     Dosage: 1 DOSE OF GEL PER DAY ON THE BREASTS RP 6 MONTHS
     Route: 065
     Dates: start: 20100317
  9. MIRTAZAPINE [Suspect]
     Active Substance: MIRTAZAPINE
     Indication: Product used for unknown indication
     Dosage: 15 MILLIGRAM
     Route: 065
  10. METEOSPASMYL (ALVERINE CITRATE\DIMETHICONE) [Suspect]
     Active Substance: ALVERINE CITRATE\DIMETHICONE
     Indication: Product used for unknown indication
     Dosage: 300 MG 3 CAPSULES A DAY
     Route: 065
  11. LOCOID [Suspect]
     Active Substance: HYDROCORTISONE BUTYRATE
     Indication: Product used for unknown indication
     Dosage: 0.1 % GREME (LOCOID CF THICK T/30G)
     Route: 065
  12. CETIRIZINE HYDROCHLORIDE [Suspect]
     Active Substance: CETIRIZINE HYDROCHLORIDE
     Indication: Product used for unknown indication
     Dosage: 10 MG
     Route: 065
  13. CETIRIZINE HYDROCHLORIDE [Suspect]
     Active Substance: CETIRIZINE HYDROCHLORIDE
     Dosage: 10 MILLIGRAM, QD (1 DF, QD/ONCE IN THE EVENING)
     Route: 065
  14. CHLORMADINONE [Suspect]
     Active Substance: CHLORMADINONE
     Indication: Product used for unknown indication
     Dosage: 10 MG
     Route: 065
  15. CHLORMADINONE [Suspect]
     Active Substance: CHLORMADINONE
     Indication: Ovarian cyst
     Dosage: MERCK, ONE TABLET PER DAY DURING 21 DAYS AND 7 DAYS OFF BY MOTHS
     Route: 065
     Dates: start: 2010
  16. DAFALGAN [Suspect]
     Active Substance: ACETAMINOPHEN
     Indication: Product used for unknown indication
     Dosage: 4 DF, QD
     Route: 048
  17. GLYCERIN\MINERAL OIL\PETROLATUM [Suspect]
     Active Substance: GLYCERIN\MINERAL OIL\PETROLATUM
     Indication: Product used for unknown indication
     Dosage: GLYCEROL 15% + LIQUID PARAFFIN 2% + VASELINE 8% CREAM (DEXERYL CR T/250 ML)
     Route: 003
  18. IBUPROFEN [Suspect]
     Active Substance: IBUPROFEN
     Indication: Product used for unknown indication
     Dosage: MAKE 3 APPLICATIONS PER DAY
     Route: 003
  19. IBUPROFEN [Suspect]
     Active Substance: IBUPROFEN
     Dosage: 5 %, TID (IBUFETUM 5% GEL T/60G) (APPLY 3 TIMES A DAY, FOR 1 MONTH)
     Route: 003
  20. NOMEGESTROL ACETATE [Suspect]
     Active Substance: NOMEGESTROL ACETATE
     Indication: Ovarian cyst
     Dosage: 5 MILLIGRAM, QD
     Route: 065
     Dates: start: 20150403
  21. NOMEGESTROL ACETATE [Suspect]
     Active Substance: NOMEGESTROL ACETATE
     Indication: Menstruation irregular
     Dosage: 5 MILLIGRAM
     Route: 065
     Dates: start: 20100621
  22. NOMEGESTROL ACETATE [Suspect]
     Active Substance: NOMEGESTROL ACETATE
     Indication: Product used for unknown indication
     Dosage: 5 MILLIGRAM
     Route: 065
     Dates: start: 20170918
  23. CHLORMADINONE ACETATE [Suspect]
     Active Substance: CHLORMADINONE ACETATE
     Indication: Menstruation irregular
     Dosage: 5 MILLIGRAM, QD (ONE TABLET PER DAY DURING 21 DAYS AND 7 DAYS OFF BY MONTHS)
     Route: 065
     Dates: start: 20140505
  24. CHLORMADINONE ACETATE [Suspect]
     Active Substance: CHLORMADINONE ACETATE
     Indication: Ovarian cyst
     Dosage: 10 MILLIGRAM, QD (1 DF , QD FOR 21 DAYS/MERCK , ONE TABLET PER DAY DURING 21 DAYS AND 7 DAYS OFF BY
     Route: 065
     Dates: start: 20190806
  25. CHLORMADINONE ACETATE [Suspect]
     Active Substance: CHLORMADINONE ACETATE
     Indication: Haemorrhage
     Dosage: 10 MILLIGRAM, QD (ONE TABLET PER DAY DURING 21 DAYS AND 7 DAYS OFF BY MONTHS)
     Route: 065
     Dates: start: 20191028
  26. CHLORMADINONE ACETATE [Suspect]
     Active Substance: CHLORMADINONE ACETATE
     Indication: Pain
     Dosage: 5 MILLIGRAM
     Route: 065
     Dates: start: 20170918
  27. CHLORMADINONE ACETATE [Suspect]
     Active Substance: CHLORMADINONE ACETATE
     Dosage: UNK
     Route: 065
     Dates: start: 201811, end: 2019
  28. CHLORMADINONE ACETATE [Suspect]
     Active Substance: CHLORMADINONE ACETATE
     Dosage: UNK
     Route: 065
     Dates: end: 202109
  29. LYRICA [Suspect]
     Active Substance: PREGABALIN
     Indication: Product used for unknown indication
     Dosage: 1 DF, BID
     Route: 048
  30. MIRTAZAPINE [Suspect]
     Active Substance: MIRTAZAPINE
     Indication: Product used for unknown indication
     Dosage: ARROW GENERIQUES 15 MG FI/30, (2 TABLETS IN THE EVENING FOR 3 MONTHS)
     Route: 048
  31. TRAMADOL HYDROCHLORIDE [Suspect]
     Active Substance: TRAMADOL HYDROCHLORIDE
     Indication: Complex regional pain syndrome
     Dosage: 1 DF, QD
     Route: 048
  32. PREGABALIN [Suspect]
     Active Substance: PREGABALIN
     Indication: Product used for unknown indication
     Dosage: PREGABAL MYL 100 MG  GEL PLQ/84
     Route: 048
  33. TIAPRIDE HYDROCHLORIDE [Suspect]
     Active Substance: TIAPRIDE HYDROCHLORIDE
     Indication: Product used for unknown indication
     Dosage: 100 MILLIGRAM, QD ~1 DF, QD/ONCE IN THE EVENING
     Route: 048
  34. TIAPRIDE HYDROCHLORIDE [Suspect]
     Active Substance: TIAPRIDE HYDROCHLORIDE
     Dosage: 150 MG, QD (150 MG CAPSULE LP ONCE-DAILY 5) TAKE 1 CAPSULE IN THE EVENING FOR 3 MONTHS)
     Route: 048
  35. CHOLECALCIFEROL [Concomitant]
     Active Substance: CHOLECALCIFEROL
     Indication: Product used for unknown indication
     Dosage: 1 DOSAGE FORM PER ONE MONTH,PRESCRIBED AT A RATE OF 1 VIAL/MONTH
     Route: 065
  36. CYAMEMAZINE [Concomitant]
     Active Substance: CYAMEMAZINE
     Indication: Product used for unknown indication
     Dosage: UNK
     Route: 065
  37. BROMAZEPAM [Concomitant]
     Active Substance: BROMAZEPAM
     Indication: Product used for unknown indication
     Dosage: UNK
     Route: 065
  38. BROMAZEPAM [Concomitant]
     Active Substance: BROMAZEPAM
     Indication: Product used for unknown indication
     Dosage: 0.25 DOSAGE FORM, BID,1/4 TABLET TWICE PER DAY AND AN ADDITIONAL QUARTER IF NECESSARY
     Route: 065
  39. DARIDOREXANT [Concomitant]
     Active Substance: DARIDOREXANT
     Indication: Product used for unknown indication
     Dosage: 1 DOSAGE FORM, QD,1 TABLET AT BEDTIME
     Route: 065

REACTIONS (58)
  - Brain compression [Unknown]
  - Epistaxis [Not Recovered/Not Resolved]
  - Meningioma [Recovered/Resolved]
  - Muscular weakness [Not Recovered/Not Resolved]
  - Pain in extremity [Not Recovered/Not Resolved]
  - Syncope [Unknown]
  - Neuralgia [Not Recovered/Not Resolved]
  - Mental disability [Unknown]
  - Meningioma [Recovered/Resolved with Sequelae]
  - Meningioma [Unknown]
  - Dizziness [Not Recovered/Not Resolved]
  - Hemiparesis [Unknown]
  - Asthenia [Recovering/Resolving]
  - Pain in extremity [Not Recovered/Not Resolved]
  - Headache [Not Recovered/Not Resolved]
  - Limb discomfort [Unknown]
  - Fibromyalgia [Unknown]
  - Hypoaesthesia [Unknown]
  - Intermenstrual bleeding [Unknown]
  - Discomfort [Unknown]
  - Disturbance in attention [Unknown]
  - Anticipatory anxiety [Unknown]
  - Claustrophobia [Unknown]
  - White matter lesion [Unknown]
  - Endometrial thickening [Unknown]
  - Learning disorder [Unknown]
  - Menometrorrhagia [Unknown]
  - Aphasia [Unknown]
  - Avoidant personality disorder [Unknown]
  - Hypercholesterolaemia [Unknown]
  - Glucose tolerance impaired [Unknown]
  - Attention deficit hyperactivity disorder [Unknown]
  - Limb discomfort [Unknown]
  - Agoraphobia [Unknown]
  - Hypoaesthesia [Unknown]
  - Scar [Not Recovered/Not Resolved]
  - Sensory loss [Unknown]
  - Gait disturbance [Unknown]
  - Uterine polyp [Unknown]
  - Memory impairment [Unknown]
  - Vaginal discharge [Unknown]
  - Weight increased [Unknown]
  - Amnesia [Unknown]
  - Decreased appetite [Unknown]
  - Insomnia [Unknown]
  - Condition aggravated [Unknown]
  - Malaise [Unknown]
  - Sleep disorder [Unknown]
  - Electric shock sensation [Unknown]
  - Panic attack [Unknown]
  - Procedural pain [Unknown]
  - Mood swings [Unknown]
  - Fibroma [Unknown]
  - Bradyphrenia [Unknown]
  - Irritability [Unknown]
  - Pain in extremity [Unknown]
  - Eating disorder [Unknown]
  - Pain [Unknown]

NARRATIVE: CASE EVENT DATE: 20150101
